FAERS Safety Report 7263661-8 (Version None)
Quarter: 2011Q1

REPORT INFORMATION
  Report Type: 
  Country: None (occurrence: None)
  Receive Date: 20110130
  Receipt Date: 20101216
  Transmission Date: 20110831
  Serious: No
  Sender: FDA-Public Use
  Company Number: US-ABBOTT-10P-163-0692070-00

PATIENT
  Age: 63 Year
  Sex: Male

DRUGS (14)
  1. PROZAC [Concomitant]
     Indication: PRODUCT USED FOR UNKNOWN INDICATION
     Route: 048
  2. GEMFIBROZIL [Concomitant]
     Indication: BLOOD CHOLESTEROL
     Route: 048
  3. CALCIUM [Concomitant]
     Indication: MINERAL SUPPLEMENTATION
  4. VICODIN [Concomitant]
     Indication: PAIN
     Dosage: THREE OR FOUR TIMES A DAY
     Route: 048
  5. HUMIRA [Suspect]
     Indication: CROHN'S DISEASE
     Dates: start: 20081201
  6. METFORMIN [Concomitant]
     Indication: PRODUCT USED FOR UNKNOWN INDICATION
     Route: 048
  7. ASPIRIN [Concomitant]
     Indication: PRODUCT USED FOR UNKNOWN INDICATION
     Route: 048
  8. VIT B12 [Concomitant]
     Indication: PRODUCT USED FOR UNKNOWN INDICATION
     Route: 050
  9. AMARYL [Concomitant]
     Indication: BLOOD GLUCOSE
     Route: 048
  10. LISINOPRIL [Concomitant]
     Indication: PRODUCT USED FOR UNKNOWN INDICATION
     Route: 048
  11. SPECTRA SR [Concomitant]
     Indication: PRODUCT USED FOR UNKNOWN INDICATION
  12. KLONOPIN [Concomitant]
     Indication: PRODUCT USED FOR UNKNOWN INDICATION
     Route: 048
  13. VALIUM [Concomitant]
     Indication: PRODUCT USED FOR UNKNOWN INDICATION
     Route: 048
  14. ASCORBIC ACID [Concomitant]
     Indication: VITAMIN SUPPLEMENTATION

REACTIONS (7)
  - SKIN LESION [None]
  - SNEEZING [None]
  - INSOMNIA [None]
  - UPPER RESPIRATORY TRACT INFECTION [None]
  - COUGH [None]
  - WOUND SECRETION [None]
  - OROPHARYNGEAL PAIN [None]
